FAERS Safety Report 6795213-8 (Version None)
Quarter: 2010Q2

REPORT INFORMATION
  Report Type: 
  Country: None (occurrence: None)
  Receive Date: 20100625
  Receipt Date: 20100622
  Transmission Date: 20101027
  Serious: Yes (Life-Threatening)
  Sender: FDA-Public Use
  Company Number: JP-ASTRAZENECA-2010SE27039

PATIENT
  Age: 58 Year
  Sex: Female

DRUGS (1)
  1. CRESTOR [Suspect]
     Indication: TYPE 2 DIABETES MELLITUS
     Route: 048
     Dates: start: 20100401, end: 20100402

REACTIONS (2)
  - ARTHRITIS [None]
  - PYREXIA [None]
